FAERS Safety Report 10866608 (Version 1)
Quarter: 2015Q1

REPORT INFORMATION
  Report Type: Spontaneous
  Country: GB (occurrence: GB)
  Receive Date: 20150225
  Receipt Date: 20150225
  Transmission Date: 20150721
  Serious: Yes (Other)
  Sender: FDA-Public Use
  Company Number: GB-ACCORD-028793

PATIENT
  Age: 66 Year
  Sex: Male

DRUGS (1)
  1. RAMIPRIL. [Suspect]
     Active Substance: RAMIPRIL
     Indication: PRODUCT USED FOR UNKNOWN INDICATION
     Route: 065

REACTIONS (5)
  - Sinusitis [Unknown]
  - Cough [Unknown]
  - Breath sounds abnormal [Unknown]
  - Bronchitis [Unknown]
  - Dyspnoea [Unknown]
